FAERS Safety Report 10937797 (Version 2)
Quarter: 2015Q2

REPORT INFORMATION
  Report Type: Spontaneous
  Country: US (occurrence: US)
  Receive Date: 20150321
  Receipt Date: 20150525
  Transmission Date: 20150821
  Serious: Yes (Disabling)
  Sender: FDA-Public Use
  Company Number: US-JNJFOC-20121102782

PATIENT
  Age: 71 Year
  Sex: Male

DRUGS (3)
  1. STELARA [Suspect]
     Active Substance: USTEKINUMAB
     Indication: PSORIASIS
     Dosage: BRODERLINE BEWTEEN 45 AND 90 MG DOSE
     Route: 058
     Dates: start: 20120920, end: 20120920
  2. STELARA [Suspect]
     Active Substance: USTEKINUMAB
     Indication: PSORIASIS
     Dosage: BRODERLINE BEWTEEN 45 AND 90 MG DOSE
     Route: 058
     Dates: start: 20120821, end: 20120821
  3. STELARA [Suspect]
     Active Substance: USTEKINUMAB
     Indication: PSORIASIS
     Dosage: BRODERLINE BEWTEEN 45 AND 90 MG DOSE
     Route: 058
     Dates: start: 20121206

REACTIONS (2)
  - Sluggishness [Not Recovered/Not Resolved]
  - Fatigue [Not Recovered/Not Resolved]

NARRATIVE: CASE EVENT DATE: 2012
